FAERS Safety Report 9179706 (Version 1)
Quarter: 2012Q4

REPORT INFORMATION
  Report Type: 
  Country: US (occurrence: US)
  Receive Date: 20121029
  Receipt Date: 20121029
  Transmission Date: 20130627
  Serious: Yes (Other)
  Sender: FDA-Public Use
  Company Number: US-FRI-1000039700

PATIENT
  Age: 45 Year
  Sex: Female

DRUGS (1)
  1. LEXAPRO [Suspect]
     Indication: DEPRESSION
     Dosage: 20 mg
     Route: 048
     Dates: start: 2009

REACTIONS (1)
  - Nephrolithiasis [Recovered/Resolved]
